FAERS Safety Report 9152561 (Version 2)
Quarter: 2013Q2

REPORT INFORMATION
  Report Type: Report from Study
  Country: US (occurrence: US)
  Receive Date: 20130308
  Receipt Date: 20130520
  Transmission Date: 20140414
  Serious: Yes (Hospitalization)
  Sender: FDA-Public Use
  Company Number: US-ACTELION-A-NJ2010-35008

PATIENT
  Age: 85 Year
  Sex: Male

DRUGS (9)
  1. TRACLEER [Suspect]
     Indication: PULMONARY ARTERIAL HYPERTENSION
     Dosage: 125 MG, BID
     Route: 048
     Dates: start: 20100128, end: 20100210
  2. TRACLEER [Suspect]
     Dosage: 125 MG, QD
     Route: 048
     Dates: start: 20100211
  3. TRACLEER [Suspect]
     Dosage: 125 MG, BID
     Route: 048
  4. TRACLEER [Suspect]
     Dosage: 62.5 MG, BID
     Route: 048
     Dates: start: 20091229, end: 20100127
  5. TADALAFIL [Concomitant]
  6. COUMADIN [Concomitant]
     Dosage: 5 MG, 5 DAYS/WEEK
  7. COUMADIN [Concomitant]
     Dosage: 2.5 MG, 2 DAYS/WEEK
  8. COLCRYS [Concomitant]
     Dosage: 0.6 MG, QD
  9. DILTIAZEM [Concomitant]
     Dosage: 120 MG, UNK

REACTIONS (4)
  - Fluid retention [Recovering/Resolving]
  - Oedema peripheral [Recovered/Resolved]
  - Renal failure [Not Recovered/Not Resolved]
  - Dialysis [Not Recovered/Not Resolved]
